FAERS Safety Report 6306138-6 (Version None)
Quarter: 2009Q3

REPORT INFORMATION
  Report Type: 
  Country: None (occurrence: None)
  Receive Date: 20090810
  Receipt Date: 20090729
  Transmission Date: 20100115
  Serious: Yes (Death)
  Sender: FDA-Public Use
  Company Number: 2009AL004208

PATIENT
  Age: 75 Year
  Sex: Male

DRUGS (9)
  1. DIGOXIN [Suspect]
     Dosage: 0.125MG, DAILY, PO
     Route: 048
     Dates: start: 20071208
  2. METOPROLOL [Concomitant]
  3. LEXAPRO [Concomitant]
  4. GENTAMICIN [Concomitant]
  5. WARFARIN SODIUM [Concomitant]
  6. HYDROCODONE [Concomitant]
  7. COMBIVENT [Concomitant]
  8. LEVAQUIN [Concomitant]
  9. TRIAMCINOLONE [Concomitant]

REACTIONS (8)
  - CHEST PAIN [None]
  - DYSPHAGIA [None]
  - DYSPNOEA [None]
  - ECONOMIC PROBLEM [None]
  - IMPAIRED WORK ABILITY [None]
  - JOINT SWELLING [None]
  - MULTIPLE INJURIES [None]
  - NAUSEA [None]
